FAERS Safety Report 9800203 (Version 1)
Quarter: 2014Q1

REPORT INFORMATION
  Report Type: Spontaneous
  Country: FR (occurrence: FR)
  Receive Date: 20140106
  Receipt Date: 20140106
  Transmission Date: 20141002
  Serious: Yes (Hospitalization)
  Sender: FDA-Public Use
  Company Number: PHHY2013FR154687

PATIENT
  Age: 79 Year
  Sex: Male
  Weight: 89 kg

DRUGS (7)
  1. AMOXICILLIN CLAVULANIC ACID SANDOZ [Suspect]
     Indication: LUNG DISORDER
     Dosage: 1 G, TID
     Route: 048
     Dates: start: 20131202, end: 20131213
  2. METRONIDAZOLE [Suspect]
     Indication: ANTIBIOTIC THERAPY
     Dosage: 500 MG, QD
     Route: 042
     Dates: start: 20131201, end: 20131202
  3. EZETROL [Concomitant]
     Dosage: 1 DF, QD
  4. SEROPLEX [Concomitant]
     Dosage: 1 DF, QD
  5. CO RENITEC [Concomitant]
     Dosage: 1 DF, QD
  6. KARDEGIC [Concomitant]
     Dosage: 1 DF, QD
  7. AXEPIM [Concomitant]
     Indication: ANTIBIOTIC THERAPY
     Dates: start: 20131201, end: 20131202

REACTIONS (3)
  - Pancreatitis acute [Recovering/Resolving]
  - Abdominal pain [Recovering/Resolving]
  - Abdominal distension [Recovering/Resolving]
